FAERS Safety Report 6187659-6 (Version None)
Quarter: 2009Q2

REPORT INFORMATION
  Report Type: 
  Country: None (occurrence: None)
  Receive Date: 20090511
  Receipt Date: 20090427
  Transmission Date: 20091009
  Serious: Yes (Death, Hospitalization, Disabling)
  Sender: FDA-Public Use
  Company Number: 1-18259937

PATIENT
  Age: 69 Year
  Sex: Male
  Weight: 99.7913 kg

DRUGS (5)
  1. WARFARIN SODIUM [Suspect]
     Indication: ATRIAL FIBRILLATION
     Dosage: ORAL
     Route: 048
     Dates: start: 20020722, end: 20081110
  2. LISINOPRIL [Concomitant]
  3. ATENOLOL [Concomitant]
  4. SIMVASTATIN [Concomitant]
  5. CHERATUSSIN (GUAIFENESIN) [Concomitant]

REACTIONS (13)
  - ASTHENIA [None]
  - BRAIN INJURY [None]
  - CENTRAL NERVOUS SYSTEM LESION [None]
  - CEREBRAL HAEMORRHAGE [None]
  - HAEMATEMESIS [None]
  - HAEMORRHAGE [None]
  - HEAD AND NECK CANCER [None]
  - LUNG NEOPLASM MALIGNANT [None]
  - MALAISE [None]
  - MALIGNANT MELANOMA [None]
  - SEROLOGY ABNORMAL [None]
  - SPUTUM ABNORMAL [None]
  - SPUTUM CULTURE POSITIVE [None]
